FAERS Safety Report 13935401 (Version 1)
Quarter: 2017Q3

REPORT INFORMATION
  Report Type: Spontaneous
  Country: DE (occurrence: DE)
  Receive Date: 20170905
  Receipt Date: 20170905
  Transmission Date: 20171127
  Serious: Yes (Congenital Anomaly, Other)
  Sender: FDA-Public Use
  Company Number: DE-ASTRAZENECA-2017SE89346

PATIENT
  Sex: Male
  Weight: 3.4 kg

DRUGS (2)
  1. ELONTRIL [Suspect]
     Active Substance: BUPROPION HYDROCHLORIDE
     Indication: BIPOLAR DISORDER
     Route: 064
  2. QUETIAPINE. [Suspect]
     Active Substance: QUETIAPINE
     Indication: BIPOLAR DISORDER
     Dosage: 600 [MG/D ]/ DOSAGE REDUCTION TO 150 MG/D
     Route: 064
     Dates: start: 20160213, end: 20161111

REACTIONS (2)
  - Hydrocephalus [Not Recovered/Not Resolved]
  - Vein of Galen aneurysmal malformation [Not Recovered/Not Resolved]
